FAERS Safety Report 4542499-6 (Version None)
Quarter: 2004Q4

REPORT INFORMATION
  Report Type: 
  Country: None (occurrence: None)
  Receive Date: 20041227
  Receipt Date: 20041217
  Transmission Date: 20050328
  Serious: Yes (Hospitalization)
  Sender: FDA-Public Use
  Company Number: 2004117114

PATIENT
  Age: 69 Year
  Sex: Male

DRUGS (16)
  1. ALDACTONE [Suspect]
     Indication: ILL-DEFINED DISORDER
     Dates: end: 20040213
  2. PREDNISONE [Concomitant]
  3. SIROLIMUS (SIROLIMUS) [Concomitant]
  4. DOXAZOSIN MESYLATE [Suspect]
     Indication: ILL-DEFINED DISORDER
     Dates: end: 20040213
  5. TELMISARTAN (TELMISARTAN) [Suspect]
     Indication: ILL-DEFINED DISORDER
     Dosage: 80 MG
     Dates: start: 20040109
  6. FUROSEMIDE [Suspect]
     Indication: ILL-DEFINED DISORDER
     Dates: start: 20040107
  7. ISOPHANE INSULIN [Suspect]
     Indication: ILL-DEFINED DISORDER
  8. ASPIRIN [Concomitant]
  9. INSULIN LISPRO (INSULIN LISPRO) [Concomitant]
  10. FLUOXETINE HYDROCHKLORIDE (FLUOXETINE HYDROCHLORIDE) [Concomitant]
  11. ATORVASTATIN (ATORVASTATIN) [Concomitant]
  12. NICOTINIC ACID [Concomitant]
  13. POTASSIUM CHLORIDE [Concomitant]
  14. SILDENAFIL CITRATE(SILDENAFIL CITRATE) [Concomitant]
  15. RABEPRAZOLE (RABEPRAZOLE SODIUM) [Concomitant]
  16. METOPROLOL TARTRATE [Suspect]
     Dates: start: 20040107

REACTIONS (2)
  - HYPOTENSION [None]
  - RENAL FAILURE ACUTE [None]
